FAERS Safety Report 25077801 (Version 2)
Quarter: 2025Q2

REPORT INFORMATION
  Report Type: Report from Study
  Country: GB (occurrence: GB)
  Receive Date: 20250314
  Receipt Date: 20250416
  Transmission Date: 20250716
  Serious: Yes (Other)
  Sender: SPRINGWORKS THERAPEUTIC
  Company Number: GB-SPRINGWORKS THERAPEUTICS-SW-002420

PATIENT

DRUGS (3)
  1. NIROGACESTAT [Suspect]
     Active Substance: NIROGACESTAT
     Indication: Gastrointestinal stromal tumour
     Dosage: 150  MILLIGRAM, BID
     Route: 048
     Dates: start: 20250116, end: 20250205
  2. NIROGACESTAT [Suspect]
     Active Substance: NIROGACESTAT
     Route: 048
     Dates: start: 20250214
  3. PREGABALIN [Concomitant]
     Active Substance: PREGABALIN
     Indication: Product used for unknown indication
     Dosage: 50 MILLIGRAM, TID
     Dates: start: 20241104, end: 20250325

REACTIONS (5)
  - Liver function test abnormal [Recovered/Resolved]
  - Vomiting [Recovered/Resolved]
  - Nausea [Recovered/Resolved]
  - Diarrhoea [Recovered/Resolved]
  - Acute kidney injury [Unknown]

NARRATIVE: CASE EVENT DATE: 20250204
